FAERS Safety Report 8523316 (Version 2)
Quarter: 2012Q4

REPORT INFORMATION
  Report Type: Spontaneous
  Country: US (occurrence: None)
  Receive Date: 20120413
  Receipt Date: 20121113
  Transmission Date: 20130627
  Serious: Yes (Hospitalization)
  Sender: FDA-Public Use
  Company Number: DSU-2012-01603

PATIENT
  Age: 60 Year
  Sex: Male
  Weight: 78.02 kg

DRUGS (12)
  1. EVOXAC [Suspect]
     Indication: DRY MOUTH
     Dosage: 15-30MG (30 MG,TID),PER ORAL
     Route: 048
     Dates: start: 20070901, end: 20120229
  2. METOPROLOL [Suspect]
     Indication: ATRIAL FIBRILLATION
     Dosage: PER ORAL
     Route: 048
     Dates: start: 20120215, end: 20120226
  3. RYTHMOL (PROPAFENONE) (150 MILLIGRAM) (PROPAFENONE0 [Concomitant]
  4. ASPIRIN [Concomitant]
  5. B12 (CYANOCOBALAMIN-TANNIN COMPLEX) (50 MILLIGRAM) (CYANOCOBALAMIN-COMPLEX) [Concomitant]
  6. B6 (PYRIDOXINE HYDROCHLORIDE) (25 MILLIGRAM) (PYRIDOXINE HYDROCHLORIDE) [Concomitant]
  7. VITAMIN D (ERGOCALCIFEROL) (500 IU (INTERNATIONAL UNIT)) (ERGOCALCIFEROL) [Concomitant]
  8. CALCIUM (CALCIUM) (1400 MILLIGRAM) (CALCIUM) [Concomitant]
  9. CITRICAL WITH D (CALCIUM CARBONATE) (CALCIUM CARBONATE) [Concomitant]
  10. MAGNESIUM (MAGNESIUM) (250 MILLIGRAM) (MAGNESIUM) [Concomitant]
  11. FISH OIL (FISH OIL) (1000 MILLIGRAM) (FISH OIL) [Concomitant]
  12. BIOTENE TOTHPASTE AND MOUTHWASH (GLUCOSE OXIDASE) (GLUCOSE OXIDASE) [Concomitant]

REACTIONS (9)
  - ATRIAL FIBRILLATION [None]
  - HEART RATE INCREASED [None]
  - FEELING ABNORMAL [None]
  - HEADACHE [None]
  - ABDOMINAL PAIN UPPER [None]
  - ASTHENIA [None]
  - DRUG INTERACTION [None]
  - BLOOD UREA INCREASED [None]
  - PROTEIN URINE PRESENT [None]
